FAERS Safety Report 24940124 (Version 4)
Quarter: 2025Q1

REPORT INFORMATION
  Report Type: Spontaneous
  Country: JP (occurrence: JP)
  Receive Date: 20250207
  Receipt Date: 20250312
  Transmission Date: 20250408
  Serious: Yes (Other)
  Sender: CSL BEHRING
  Company Number: JP-BEH-2025194062

PATIENT
  Age: 16 Year
  Sex: Male

DRUGS (11)
  1. BERINERT [Suspect]
     Active Substance: HUMAN C1-ESTERASE INHIBITOR
     Indication: Abdominal pain
     Route: 042
  2. BERINERT [Suspect]
     Active Substance: HUMAN C1-ESTERASE INHIBITOR
     Indication: Abdominal pain
     Route: 042
  3. BERINERT [Suspect]
     Active Substance: HUMAN C1-ESTERASE INHIBITOR
     Indication: Hereditary angioedema
  4. BERINERT [Suspect]
     Active Substance: HUMAN C1-ESTERASE INHIBITOR
     Indication: Hereditary angioedema
  5. HUMAN C1-ESTERASE INHIBITOR [Suspect]
     Active Substance: HUMAN C1-ESTERASE INHIBITOR
     Indication: Prophylaxis
     Route: 058
  6. HUMAN C1-ESTERASE INHIBITOR [Suspect]
     Active Substance: HUMAN C1-ESTERASE INHIBITOR
     Indication: Hereditary angioedema
  7. ICATIBANT ACETATE [Concomitant]
     Active Substance: ICATIBANT ACETATE
     Indication: Hereditary angioedema
  8. BEROTRALSTAT [Concomitant]
     Active Substance: BEROTRALSTAT
     Indication: Prophylaxis
  9. BEROTRALSTAT [Concomitant]
     Active Substance: BEROTRALSTAT
     Indication: Hereditary angioedema
  10. PREDNISOLONE [Concomitant]
     Active Substance: PREDNISOLONE
     Indication: Oral pain
  11. PREDNISOLONE [Concomitant]
     Active Substance: PREDNISOLONE
     Indication: Food allergy

REACTIONS (9)
  - Hereditary angioedema [Recovered/Resolved]
  - Hereditary angioedema [Recovered/Resolved]
  - Prinzmetal angina [Unknown]
  - Chest pain [Unknown]
  - Emergency care [Unknown]
  - Hypermobility syndrome [Unknown]
  - Pain [Unknown]
  - Thermal burn [Unknown]
  - Pain [Unknown]
